FAERS Safety Report 7138600-0 (Version None)
Quarter: 2010Q4

REPORT INFORMATION
  Report Type: 
  Country: None (occurrence: None)
  Receive Date: 20101109
  Receipt Date: 20101029
  Transmission Date: 20110411
  Serious: Yes (Hospitalization)
  Sender: FDA-Public Use
  Company Number: 2010026779

PATIENT
  Sex: Male

DRUGS (1)
  1. PRIVIGEN [Suspect]
     Dosage: 25 G, PRIVIGEN 10% INTRAVENOUS
     Route: 042
     Dates: start: 20101001

REACTIONS (3)
  - NAUSEA [None]
  - VISUAL IMPAIRMENT [None]
  - VOMITING [None]
